FAERS Safety Report 18446012 (Version 4)
Quarter: 2020Q4

REPORT INFORMATION
  Report Type: Spontaneous
  Country: GB (occurrence: GB)
  Receive Date: 20201030
  Receipt Date: 20201125
  Transmission Date: 20210114
  Serious: Yes (Hospitalization, Other)
  Sender: FDA-Public Use
  Company Number: GB-JNJFOC-20201041596

PATIENT
  Age: 52 Year

DRUGS (1)
  1. XARELTO [Suspect]
     Active Substance: RIVAROXABAN
     Indication: ATRIAL FIBRILLATION
     Dosage: 20 MG, QD
     Route: 048

REACTIONS (4)
  - Musculoskeletal stiffness [Unknown]
  - Hemiparaesthesia [Unknown]
  - Drug ineffective [Unknown]
  - Lacunar stroke [Unknown]

NARRATIVE: CASE EVENT DATE: 20200729
